FAERS Safety Report 6142651-2 (Version None)
Quarter: 2009Q2

REPORT INFORMATION
  Report Type: 
  Country: None (occurrence: None)
  Receive Date: 20090403
  Receipt Date: 20090324
  Transmission Date: 20091009
  Serious: Yes (Other)
  Sender: FDA-Public Use
  Company Number: DE-BAYER-200917544GPV

PATIENT
  Sex: Female

DRUGS (1)
  1. MIRENA [Suspect]
     Indication: DRUG USE FOR UNKNOWN INDICATION
     Route: 015

REACTIONS (7)
  - ADVERSE REACTION [None]
  - AMENORRHOEA [None]
  - DEPRESSION [None]
  - FEMALE SEX HORMONE LEVEL ABNORMAL [None]
  - PANIC ATTACK [None]
  - PREMENSTRUAL SYNDROME [None]
  - SUICIDAL IDEATION [None]
